FAERS Safety Report 10367547 (Version 1)
Quarter: 2014Q3

REPORT INFORMATION
  Report Type: Spontaneous
  Country: IT (occurrence: IT)
  Receive Date: 20140807
  Receipt Date: 20140807
  Transmission Date: 20150326
  Serious: Yes (Hospitalization)
  Sender: FDA-Public Use
  Company Number: IT-RANBAXY-2014RR-84153

PATIENT
  Age: 73 Year
  Sex: Male

DRUGS (5)
  1. AMOXICILLIN. [Suspect]
     Active Substance: AMOXICILLIN
     Indication: INFECTION
     Dosage: 1 G TOTAL
     Route: 048
     Dates: start: 20140120, end: 20140120
  2. CARDIOASPIRIN [Concomitant]
     Active Substance: ASPIRIN
     Indication: PRODUCT USED FOR UNKNOWN INDICATION
     Dosage: 100 MG
     Route: 048
  3. CRESTOR [Concomitant]
     Active Substance: ROSUVASTATIN CALCIUM
     Indication: PRODUCT USED FOR UNKNOWN INDICATION
     Dosage: 10 MG
     Route: 048
  4. SEROPRAM [Concomitant]
     Active Substance: CITALOPRAM HYDROBROMIDE
     Indication: PRODUCT USED FOR UNKNOWN INDICATION
     Dosage: UNK
     Route: 048
  5. FOSTER [Concomitant]
     Active Substance: BECLOMETHASONE\FORMOTEROL
     Indication: PRODUCT USED FOR UNKNOWN INDICATION
     Dosage: PRESSURIZED SOLUTION FOR INHALATION
     Route: 055

REACTIONS (1)
  - Anaphylactic shock [Recovered/Resolved]

NARRATIVE: CASE EVENT DATE: 20140120
